FAERS Safety Report 15620613 (Version 1)
Quarter: 2018Q4

REPORT INFORMATION
  Report Type: Spontaneous
  Country: US (occurrence: US)
  Receive Date: 20181115
  Receipt Date: 20181115
  Transmission Date: 20190205
  Serious: No
  Sender: FDA-Public Use
  Company Number: US-BAYER-2018-212209

PATIENT
  Age: 75 Year
  Sex: Female
  Weight: 78.96 kg

DRUGS (1)
  1. MIRALAX [Suspect]
     Active Substance: POLYETHYLENE GLYCOL 3350
     Dosage: UNK ;HALF IN THE DAY AND HALF IN THE NIGHT UNKNOWN
     Route: 048

REACTIONS (1)
  - Incorrect dosage administered [Unknown]
